FAERS Safety Report 8462310-0 (Version None)
Quarter: 2012Q2

REPORT INFORMATION
  Report Type: 
  Country: None (occurrence: None)
  Receive Date: 20120618
  Receipt Date: 20120602
  Transmission Date: 20120825
  Serious: Yes (Other)
  Sender: FDA-Public Use
  Company Number: 2012AP001702

PATIENT
  Age: 56 Year
  Sex: Male

DRUGS (3)
  1. LOSARTAN POTASSIUM [Concomitant]
  2. DICLOFENAC SODIUM [Suspect]
     Indication: PAIN IN EXTREMITY
     Dosage: 100 MG;BID
     Dates: start: 20110501
  3. PRAVASTATIN [Concomitant]

REACTIONS (3)
  - BAROTRAUMA [None]
  - HAEMOPTYSIS [None]
  - PULMONARY OEDEMA [None]
